FAERS Safety Report 13185550 (Version 1)
Quarter: 2017Q1

REPORT INFORMATION
  Report Type: Report from Study
  Country: None (occurrence: BR)
  Receive Date: 20170203
  Receipt Date: 20170203
  Transmission Date: 20170428
  Serious: Yes (Hospitalization, Other)
  Sender: FDA-Public Use
  Company Number: BR-ABBVIE-17P-020-1860241-00

PATIENT
  Age: 56 Year
  Sex: Male
  Weight: 48 kg

DRUGS (1)
  1. HUMIRA [Suspect]
     Active Substance: ADALIMUMAB
     Indication: RHEUMATOID ARTHRITIS
     Route: 058
     Dates: start: 20120801, end: 201610

REACTIONS (11)
  - Intra-abdominal fluid collection [Recovered/Resolved]
  - Gait disturbance [Recovering/Resolving]
  - Asthenia [Recovering/Resolving]
  - Pyrexia [Recovering/Resolving]
  - Dyspnoea [Recovering/Resolving]
  - Weight decreased [Recovering/Resolving]
  - Weight increased [Recovered/Resolved]
  - Decreased appetite [Recovering/Resolving]
  - Abdominal distension [Recovered/Resolved]
  - Pain [Unknown]
  - Pulmonary mass [Not Recovered/Not Resolved]

NARRATIVE: CASE EVENT DATE: 201510
